FAERS Safety Report 13195380 (Version 1)
Quarter: 2017Q1

REPORT INFORMATION
  Report Type: Spontaneous
  Country: US (occurrence: US)
  Receive Date: 20170207
  Receipt Date: 20170207
  Transmission Date: 20170428
  Serious: Yes (Hospitalization)
  Sender: FDA-Public Use
  Company Number: None

PATIENT
  Age: 34 Year
  Sex: Male

DRUGS (2)
  1. GENVOYA [Suspect]
     Active Substance: COBICISTAT\ELVITEGRAVIR\EMTRICITABINE\TENOFOVIR ALAFENAMIDE FUMARATE
     Indication: OSTEOPOROSIS
     Dosage: 1 TAB PO QD PO
     Route: 048
  2. ATIVAN [Concomitant]
     Active Substance: LORAZEPAM

REACTIONS (3)
  - Abscess [None]
  - Head injury [None]
  - Hepatic enzyme increased [None]

NARRATIVE: CASE EVENT DATE: 201701
